FAERS Safety Report 4608993-4 (Version None)
Quarter: 2005Q1

REPORT INFORMATION
  Report Type: 
  Country: None (occurrence: None)
  Receive Date: 20050311
  Receipt Date: 20050303
  Transmission Date: 20050727
  Serious: Yes (Other)
  Sender: FDA-Public Use
  Company Number: 2005037661

PATIENT
  Age: 66 Year
  Sex: Female
  Weight: 67.1324 kg

DRUGS (5)
  1. LIPITOR [Suspect]
     Indication: BLOOD CHOLESTEROL INCREASED
     Dosage: 1 IN 1 D ORAL
     Route: 048
     Dates: end: 20050222
  2. RALOXIFENE HCL [Suspect]
     Indication: OSTEOPOROSIS
     Dosage: ORAL
  3. RISEDRONATE SODIUM (RISEDRONATE SODIUM) [Concomitant]
  4. CHLORTALIDONE (CHLORTALIDONE) [Concomitant]
  5. ASPIRIN [Concomitant]

REACTIONS (5)
  - LOWER LIMB FRACTURE [None]
  - MIDDLE INSOMNIA [None]
  - MUSCULAR WEAKNESS [None]
  - MYALGIA [None]
  - PHARMACEUTICAL PRODUCT COMPLAINT [None]
